FAERS Safety Report 7582459-4 (Version None)
Quarter: 2011Q2

REPORT INFORMATION
  Report Type: 
  Country: None (occurrence: None)
  Receive Date: 20110623
  Receipt Date: 20110610
  Transmission Date: 20111010
  Serious: Yes (Hospitalization)
  Sender: FDA-Public Use
  Company Number: 1000021662

PATIENT
  Age: 77 Year
  Sex: Female

DRUGS (7)
  1. URBANYL (CLOBAZAM) (TABLETS) [Concomitant]
  2. FUROSEMIDE [Concomitant]
  3. DEPAKOTE [Concomitant]
  4. ESCITALOPRAM [Suspect]
     Dosage: 10 MG (10 MG, 1 IN 1 D), ORAL
     Route: 048
  5. CRESTOR (ROSUVASTATIN) (TABLETS) [Concomitant]
  6. PLAVIX [Suspect]
     Dosage: 75 MG (75 MG, 1 IN 1 D), ORAL
     Route: 048
     Dates: start: 20090101, end: 20110427
  7. TERCIAN (CYAMEMAZINE) (CAPSULES) [Concomitant]

REACTIONS (8)
  - DISORIENTATION [None]
  - FALL [None]
  - FACE INJURY [None]
  - LOSS OF CONSCIOUSNESS [None]
  - AMNESIA [None]
  - HEMIPARESIS [None]
  - CEREBRAL HAEMORRHAGE [None]
  - HEAD INJURY [None]
